FAERS Safety Report 17901246 (Version 4)
Quarter: 2023Q1

REPORT INFORMATION
  Report Type: Spontaneous
  Country: US (occurrence: US)
  Receive Date: 20200616
  Receipt Date: 20230228
  Transmission Date: 20230417
  Serious: Yes (Death, Hospitalization, Other)
  Sender: FDA-Public Use
  Company Number: US-GLAXOSMITHKLINE-US2020GSK016867

PATIENT

DRUGS (6)
  1. PREVACID 24 HR [Suspect]
     Active Substance: LANSOPRAZOLE
     Indication: Gastrooesophageal reflux disease
     Dosage: 15 MG
     Route: 065
     Dates: start: 2003, end: 2017
  2. PREVACID 24 HR [Suspect]
     Active Substance: LANSOPRAZOLE
     Indication: Dyspepsia
  3. NEXIUM 24HR [Suspect]
     Active Substance: ESOMEPRAZOLE MAGNESIUM
     Indication: Dyspepsia
     Dosage: 20 MG
     Route: 065
     Dates: start: 2009, end: 2017
  4. NEXIUM 24HR [Suspect]
     Active Substance: ESOMEPRAZOLE MAGNESIUM
     Indication: Gastrooesophageal reflux disease
  5. PRILOSEC [Suspect]
     Active Substance: OMEPRAZOLE MAGNESIUM
     Indication: Gastrooesophageal reflux disease
     Dosage: 20 MG
     Route: 065
     Dates: start: 2009, end: 2017
  6. PRILOSEC [Suspect]
     Active Substance: OMEPRAZOLE MAGNESIUM
     Indication: Dyspepsia

REACTIONS (23)
  - Death [Fatal]
  - Diverticulum intestinal [Unknown]
  - Colorectal adenoma [Unknown]
  - Nephrolithiasis [Unknown]
  - Gastric cancer [Not Recovered/Not Resolved]
  - Adenocarcinoma gastric [Unknown]
  - Gastrectomy [Unknown]
  - Iron deficiency anaemia [Unknown]
  - Gastric cancer stage IV [Unknown]
  - Renal injury [Unknown]
  - Loss of consciousness [Unknown]
  - Metastatic gastric cancer [Unknown]
  - Gastric neoplasm [Unknown]
  - Anaemia [Unknown]
  - Neoplasm [Unknown]
  - Pollakiuria [Unknown]
  - Ureterolithiasis [Unknown]
  - Stomach mass [Unknown]
  - Vomiting [Unknown]
  - Hyperchlorhydria [Unknown]
  - Chronic gastritis [Unknown]
  - Renal disorder [Unknown]
  - Renal cyst [Unknown]

NARRATIVE: CASE EVENT DATE: 20161224
